FAERS Safety Report 8157878-8 (Version None)
Quarter: 2012Q1

REPORT INFORMATION
  Report Type: 
  Country: None (occurrence: None)
  Receive Date: 20120222
  Receipt Date: 20120216
  Transmission Date: 20120608
  Serious: Yes (Hospitalization, Other)
  Sender: FDA-Public Use
  Company Number: US-ASTRAZENECA-2009UW12876

PATIENT
  Age: 45 Year
  Sex: Female
  Weight: 62.6 kg

DRUGS (6)
  1. FENTANYL [Concomitant]
     Indication: NEUROPATHY PERIPHERAL
  2. TEMSIROLIMUS [Concomitant]
  3. SEROQUEL [Suspect]
     Indication: BIPOLAR DISORDER
     Route: 048
  4. LEVOTHYROXINE SODIUM [Concomitant]
     Indication: THYROID DISORDER
     Dosage: 250-50 DAILY
  5. SEROQUEL [Suspect]
     Dosage: ONE TABLET TWICE A DAY AND TWO TABLETS AT NIGHT
     Route: 048
  6. METFORMIN HCL [Concomitant]
     Indication: DIABETES MELLITUS

REACTIONS (11)
  - PNEUMONIA [None]
  - INSOMNIA [None]
  - DEPRESSED MOOD [None]
  - ADVERSE EVENT [None]
  - MOOD SWINGS [None]
  - DRUG DOSE OMISSION [None]
  - MALAISE [None]
  - NERVOUSNESS [None]
  - PAIN IN EXTREMITY [None]
  - LIMB INJURY [None]
  - CRYING [None]
